FAERS Safety Report 8088542-1 (Version None)
Quarter: 2012Q1

REPORT INFORMATION
  Report Type: 
  Country: None (occurrence: None)
  Receive Date: 20120128
  Receipt Date: 20110407
  Transmission Date: 20120608
  Serious: No
  Sender: FDA-Public Use
  Company Number: US-ABBOTT-11P-163-0717452-00

PATIENT
  Age: 71 Year
  Sex: Male

DRUGS (5)
  1. HUMIRA [Suspect]
     Indication: PSORIASIS
     Dates: start: 20110201
  2. TOPROL-XL [Concomitant]
     Indication: BLOOD PRESSURE
  3. CRESTOR [Concomitant]
     Indication: BLOOD CHOLESTEROL
  4. ASPIRIN [Concomitant]
     Indication: PRODUCT USED FOR UNKNOWN INDICATION
     Dosage: DAILY
  5. DOXEPIN [Concomitant]
     Indication: PSORIASIS

REACTIONS (1)
  - PRURITUS [None]
